FAERS Safety Report 9247938 (Version 1)
Quarter: 2013Q2

REPORT INFORMATION
  Report Type: Spontaneous
  Country: US (occurrence: None)
  Receive Date: 20130419
  Receipt Date: 20130419
  Transmission Date: 20140414
  Serious: Yes (Life-Threatening, Hospitalization)
  Sender: FDA-Public Use
  Company Number: None

PATIENT
  Age: 67 Year
  Sex: Male
  Weight: 122.47 kg

DRUGS (1)
  1. GABAPENTIN 300 MG [Suspect]
     Indication: NEUROPATHY PERIPHERAL
     Dosage: 1-2 DOSES 3 TIMES DAILY PO
     Route: 048
     Dates: start: 20130321, end: 20130417

REACTIONS (1)
  - Transient ischaemic attack [None]
